FAERS Safety Report 24691081 (Version 1)
Quarter: 2024Q4

REPORT INFORMATION
  Report Type: Spontaneous
  Country: US (occurrence: None)
  Receive Date: 20241202
  Receipt Date: 20241202
  Transmission Date: 20250115
  Serious: Yes (Death)
  Sender: Public
  Company Number: None

PATIENT
  Age: 69 Year
  Sex: Male
  Weight: 68.9 kg

DRUGS (7)
  1. MAVYRET [Suspect]
     Active Substance: GLECAPREVIR\PIBRENTASVIR
     Indication: Hepatitis C
     Dosage: FREQUENCY : DAILY;?
     Route: 048
     Dates: start: 20240922, end: 20241129
  2. CELEBREX [Concomitant]
     Active Substance: CELECOXIB
  3. OXYCODONE [Concomitant]
     Active Substance: OXYCODONE
  4. xtampza er 18mg [Concomitant]
  5. FENTANYL [Concomitant]
     Active Substance: FENTANYL
  6. PREGABALIN [Concomitant]
     Active Substance: PREGABALIN
  7. LIDOCAINE [Concomitant]
     Active Substance: LIDOCAINE

REACTIONS (2)
  - Prostate cancer metastatic [None]
  - Hospice care [None]

NARRATIVE: CASE EVENT DATE: 20241129
